FAERS Safety Report 8911493 (Version 1)
Quarter: 2012Q4

REPORT INFORMATION
  Report Type: 
  Country: US (occurrence: US)
  Receive Date: 20121116
  Receipt Date: 20121116
  Transmission Date: 20130627
  Serious: Yes (Hospitalization)
  Sender: FDA-Public Use
  Company Number: US-BAYER-2012-117933

PATIENT
  Age: 47 Year
  Sex: Female
  Weight: 122.45 kg

DRUGS (10)
  1. YAZ [Suspect]
     Indication: CONTRACEPTION
  2. YAZ [Suspect]
     Indication: MENSTRUAL CYCLE MANAGEMENT
  3. LEVOTHYROXINE [Concomitant]
     Dosage: 125 mg, daily
  4. BUMEX [Concomitant]
  5. NEXIUM [Concomitant]
  6. VICODIN [Concomitant]
     Indication: PAIN
     Dosage: 1 every 6 hours, PRN
  7. MOTRIN [Concomitant]
     Dosage: 800 mg, BID
  8. MAXALT [Concomitant]
     Dosage: 10 mg, UNK
  9. ANTIBIOTICS [Concomitant]
     Indication: CELLULITIS
  10. KEFLEX [Concomitant]

REACTIONS (2)
  - Deep vein thrombosis [None]
  - Off label use [None]
